FAERS Safety Report 9308812 (Version 1)
Quarter: 2013Q2

REPORT INFORMATION
  Report Type: Spontaneous
  Country: US (occurrence: US)
  Receive Date: 20130524
  Receipt Date: 20130524
  Transmission Date: 20140414
  Serious: Yes (Death, Other)
  Sender: FDA-Public Use
  Company Number: US-GENZYME-CAMP-1002934

PATIENT
  Age: 65 Year
  Sex: Female

DRUGS (4)
  1. CAMPATH [Suspect]
     Indication: APLASTIC ANAEMIA
     Dosage: UNK
     Route: 065
  2. THYMOGLOBULIN [Suspect]
     Indication: APLASTIC ANAEMIA
     Dosage: UNK
     Route: 065
  3. SOLU MEDROL [Suspect]
     Indication: APLASTIC ANAEMIA
     Dosage: UNK
     Route: 065
  4. CYCLOSPORINE [Suspect]
     Indication: APLASTIC ANAEMIA
     Dosage: UNK
     Route: 065

REACTIONS (7)
  - Pneumonia fungal [Fatal]
  - Febrile neutropenia [Unknown]
  - Enterococcal bacteraemia [Unknown]
  - Bacteraemia [Unknown]
  - Bacteraemia [Unknown]
  - Stenotrophomonas infection [Unknown]
  - Off label use [Unknown]
